FAERS Safety Report 9965123 (Version 1)
Quarter: 2014Q1

REPORT INFORMATION
  Report Type: Report from Study
  Country: US (occurrence: US)
  Receive Date: 20140305
  Receipt Date: 20140305
  Transmission Date: 20141002
  Serious: No
  Sender: FDA-Public Use
  Company Number: US-ABBVIE-13P-163-1127884-00

PATIENT
  Age: 56 Year
  Sex: Female

DRUGS (2)
  1. HUMIRA [Suspect]
     Indication: PSORIATIC ARTHROPATHY
     Dates: start: 201306
  2. PREDNISONE [Concomitant]
     Indication: ARTHRITIS
     Dosage: 5 - 10 MG DAILY DEPENDING ON ARTHRITIS/WALKING ABILITY PER HCP

REACTIONS (4)
  - Toothache [Recovering/Resolving]
  - Tooth abscess [Recovering/Resolving]
  - Wrong technique in drug usage process [Recovering/Resolving]
  - Incorrect route of drug administration [Recovering/Resolving]
